FAERS Safety Report 15499801 (Version 1)
Quarter: 2018Q4

REPORT INFORMATION
  Report Type: Spontaneous
  Country: US (occurrence: US)
  Receive Date: 20181008
  Receipt Date: 20181008
  Transmission Date: 20190205
  Serious: Yes (Hospitalization)
  Sender: FDA-Public Use
  Company Number: None

PATIENT
  Age: 58 Year
  Sex: Female
  Weight: 58.7 kg

DRUGS (1)
  1. VIVITROL [Suspect]
     Active Substance: NALTREXONE
     Route: 030
     Dates: start: 20180904, end: 20180904

REACTIONS (5)
  - Injection site induration [None]
  - Injection site pain [None]
  - Injection site swelling [None]
  - Necrosis [None]
  - Localised infection [None]

NARRATIVE: CASE EVENT DATE: 20180904
